FAERS Safety Report 22163441 (Version 1)
Quarter: 2023Q2

REPORT INFORMATION
  Report Type: Report from Study
  Country: US (occurrence: US)
  Receive Date: 20230401
  Receipt Date: 20230401
  Transmission Date: 20230722
  Serious: Yes (Other)
  Sender: FDA-Public Use
  Company Number: US-TRAVERE-2023TVT00029

PATIENT
  Age: 1 Year
  Sex: Male
  Weight: 9.88 kg

DRUGS (15)
  1. CHOLIC ACID [Suspect]
     Active Substance: CHOLIC ACID
     Indication: Cerebrohepatorenal syndrome
     Route: 048
     Dates: start: 20210922
  2. CHOLIC ACID [Suspect]
     Active Substance: CHOLIC ACID
     Route: 048
     Dates: start: 20211026
  3. FAMOTIDINE [Concomitant]
     Active Substance: FAMOTIDINE
  4. PHYTONADIONE [Concomitant]
     Active Substance: PHYTONADIONE
  5. dekas plus oral liquid [Concomitant]
  6. ciproflex-dexamethasone [Concomitant]
     Dates: start: 20211116, end: 20211212
  7. CEPHALEXIN [Concomitant]
     Active Substance: CEPHALEXIN
     Dates: start: 20211114, end: 20211123
  8. MYCOSTATIN [Concomitant]
     Active Substance: NYSTATIN
  9. Triamcinolone-acetonide cream [Concomitant]
  10. FERROUS SULFATE [Concomitant]
     Active Substance: FERROUS SULFATE
  11. HUMAN RED BLOOD CELL [Concomitant]
     Active Substance: HUMAN RED BLOOD CELL
  12. FLUDROCORTISONE ACETATE [Concomitant]
     Active Substance: FLUDROCORTISONE ACETATE
  13. LANSOPRAZOLE [Concomitant]
     Active Substance: LANSOPRAZOLE
  14. VITAMIN K [Concomitant]
     Active Substance: PHYTONADIONE
  15. ciproflex-dexamethasone [Concomitant]

REACTIONS (1)
  - Primary adrenal insufficiency [Not Recovered/Not Resolved]

NARRATIVE: CASE EVENT DATE: 20221221
